FAERS Safety Report 7348340-0 (Version None)
Quarter: 2011Q1

REPORT INFORMATION
  Report Type: 
  Country: None (occurrence: None)
  Receive Date: 20110311
  Receipt Date: 20110303
  Transmission Date: 20110831
  Serious: Yes (Hospitalization)
  Sender: FDA-Public Use
  Company Number: US-GENENTECH-300872

PATIENT
  Age: 81 Year
  Sex: Female

DRUGS (12)
  1. NORVASC [Concomitant]
     Indication: HYPERTENSION
     Dosage: UNK
     Dates: start: 20100101
  2. BYSTOLIC [Concomitant]
     Indication: HYPERTENSION
     Dosage: UNK
     Dates: start: 20100101
  3. ICAPS [Concomitant]
     Indication: MEDICAL DIET
     Dosage: UNK
     Dates: start: 20090201
  4. RANIBIZUMAB [Suspect]
     Indication: MACULAR DEGENERATION
     Dosage: UNK
     Dates: start: 20090211
  5. RADIATION THERAPY [Suspect]
     Indication: MACULAR DEGENERATION
     Dosage: UNK
     Dates: start: 20090211
  6. LISINOPRIL [Concomitant]
     Indication: HYPERTENSION
     Dosage: UNK
     Dates: start: 20060101
  7. DIAZEPAM [Concomitant]
     Indication: RESTLESS LEGS SYNDROME
     Dosage: UNK
     Dates: start: 20070101
  8. HYDROCHLOROTHIAZIDE [Concomitant]
     Indication: HYPERCHOLESTEROLAEMIA
     Dosage: UNK
     Dates: start: 20100101
  9. ESTRADIOL [Concomitant]
     Indication: MENOPAUSE
     Dosage: UNK
     Dates: start: 19900101
  10. HYDROCODONE [Concomitant]
     Indication: PAIN
     Dosage: UNK
     Dates: start: 20100101
  11. PRAVASTATIN [Concomitant]
     Indication: HYPERCHOLESTEROLAEMIA
     Dosage: UNK
     Dates: start: 20100101
  12. TOPIRAMATE [Concomitant]
     Indication: MIGRAINE
     Dosage: UNK
     Dates: start: 20100101

REACTIONS (1)
  - HYPERTENSION [None]
